FAERS Safety Report 7623320-6 (Version None)
Quarter: 2011Q3

REPORT INFORMATION
  Report Type: 
  Country: None (occurrence: None)
  Receive Date: 20110720
  Receipt Date: 20110711
  Transmission Date: 20111222
  Serious: Yes (Death, Other)
  Sender: FDA-Public Use
  Company Number: GB-ROCHE-776761

PATIENT
  Age: 46 Year
  Weight: 92 kg

DRUGS (2)
  1. HERCEPTIN [Suspect]
     Route: 065
     Dates: start: 20100501, end: 20110101
  2. TAMOXIFEN CITRATE [Concomitant]

REACTIONS (3)
  - CARDIOTOXICITY [None]
  - CARDIAC FAILURE ACUTE [None]
  - EJECTION FRACTION DECREASED [None]
